FAERS Safety Report 8081792-X (Version None)
Quarter: 2012Q1

REPORT INFORMATION
  Report Type: 
  Country: None (occurrence: None)
  Receive Date: 20120130
  Receipt Date: 20120125
  Transmission Date: 20120608
  Serious: Yes (Life-Threatening)
  Sender: FDA-Public Use
  Company Number: JP-ASTRAZENECA-2012SE05612

PATIENT

DRUGS (1)
  1. DIPRIVAN [Suspect]
     Dosage: DOSE UNKNOWN
     Route: 042

REACTIONS (1)
  - SINUS ARREST [None]
